FAERS Safety Report 7539172-9 (Version None)
Quarter: 2011Q2

REPORT INFORMATION
  Report Type: 
  Country: None (occurrence: None)
  Receive Date: 20110610
  Receipt Date: 20030213
  Transmission Date: 20111010
  Serious: Yes (Death, Life-Threatening, Hospitalization)
  Sender: FDA-Public Use
  Company Number: PHFR2002GB04244

PATIENT
  Sex: Female

DRUGS (6)
  1. CLOZAPINE [Suspect]
     Indication: SCHIZOPHRENIA
     Dosage: 550MG DAILY
     Route: 048
     Dates: start: 19960805
  2. OXCARBAZEPINE [Concomitant]
     Dosage: 900MG/DAY
     Route: 048
  3. PROCYCLIDINE HYDROCHLORIDE 2MG TAB [Concomitant]
     Dosage: 10MG/DAY
     Route: 048
  4. VALPROATE SODIUM [Concomitant]
     Dosage: 2G/DAY
     Route: 048
  5. MIXTARD HUMAN 70/30 [Concomitant]
     Dosage: 60UKN/UNITS
  6. DEPO-PROVERA [Concomitant]
     Dosage: 150MG/3 MONTHLY
     Route: 030

REACTIONS (4)
  - CIRCULATORY COLLAPSE [None]
  - RESPIRATORY DISORDER [None]
  - RESPIRATORY DEPRESSION [None]
  - LOSS OF CONSCIOUSNESS [None]
